FAERS Safety Report 16694481 (Version 1)
Quarter: 2019Q3

REPORT INFORMATION
  Report Type: Spontaneous
  Country: FR (occurrence: FR)
  Receive Date: 20190812
  Receipt Date: 20190812
  Transmission Date: 20191004
  Serious: Yes (Hospitalization)
  Sender: FDA-Public Use
  Company Number: FR-OTSUKA-2019_028711

PATIENT
  Age: 51 Year
  Sex: Male

DRUGS (2)
  1. ARIPIPRAZOLE. [Suspect]
     Active Substance: ARIPIPRAZOLE
     Indication: PRODUCT USED FOR UNKNOWN INDICATION
     Dosage: 300 MG/26 DAYS (1.5 ML; EQUIVALENT TO 25.05 MG/DAY ORAL?LY)
     Route: 065
  2. ARIPIPRAZOLE. [Suspect]
     Active Substance: ARIPIPRAZOLE
     Dosage: 75 MG/26 DAYS (EQUIVALENT TO 6.2625 MG/ DAY ORALLY)
     Route: 065

REACTIONS (4)
  - Akathisia [Recovering/Resolving]
  - Underdose [Unknown]
  - Condition aggravated [Recovering/Resolving]
  - Tardive dyskinesia [Recovering/Resolving]
